FAERS Safety Report 16177022 (Version 2)
Quarter: 2019Q2

REPORT INFORMATION
  Report Type: Spontaneous
  Country: PL (occurrence: PL)
  Receive Date: 20190409
  Receipt Date: 20190416
  Transmission Date: 20190711
  Serious: Yes (Other)
  Sender: FDA-Public Use
  Company Number: PL-BAXTER-2019BAX006800

PATIENT
  Age: 27 Year
  Sex: Female

DRUGS (19)
  1. BLEOMYCIN [Suspect]
     Active Substance: BLEOMYCIN SULFATE
     Dosage: 6 CYCLES, ABVD REGIMEN
     Route: 065
  2. CYTARABINE. [Suspect]
     Active Substance: CYTARABINE
     Dosage: ESHAP REGIMEN
     Route: 065
  3. MELPHALAN. [Suspect]
     Active Substance: MELPHALAN
     Indication: NON-HODGKIN^S LYMPHOMA REFRACTORY
     Dosage: BEAM REGIMEN
     Route: 065
  4. PROCARBAZINE [Suspect]
     Active Substance: PROCARBAZINE
     Indication: NON-HODGKIN^S LYMPHOMA REFRACTORY
     Dosage: BEACOPP REGIMEN
     Route: 065
  5. CISPLATIN. [Suspect]
     Active Substance: CISPLATIN
     Indication: NON-HODGKIN^S LYMPHOMA REFRACTORY
     Dosage: ESHAP REGIMEN
     Route: 065
  6. METHYLPREDNISOLONE. [Suspect]
     Active Substance: METHYLPREDNISOLONE
     Indication: NON-HODGKIN^S LYMPHOMA REFRACTORY
     Dosage: ESHAP REGIMEN
     Route: 065
  7. ENDOXAN [Suspect]
     Active Substance: CYCLOPHOSPHAMIDE
     Indication: NON-HODGKIN^S LYMPHOMA REFRACTORY
     Dosage: BEACOPP REGIMEN
     Route: 065
  8. DOXORUBICIN [Suspect]
     Active Substance: DOXORUBICIN
     Dosage: 6 CYCLES, ABVD REGIMEN
     Route: 065
  9. VINCRISTINE [Suspect]
     Active Substance: VINCRISTINE
     Indication: NON-HODGKIN^S LYMPHOMA REFRACTORY
     Dosage: BEACOPP REGIMEN
     Route: 065
  10. VINBLASTINE [Suspect]
     Active Substance: VINBLASTINE
     Indication: NON-HODGKIN^S LYMPHOMA REFRACTORY
     Dosage: 6 CYCLES, ABVD REGIMEN
     Route: 065
  11. DACARBAZINE. [Suspect]
     Active Substance: DACARBAZINE
     Indication: NON-HODGKIN^S LYMPHOMA REFRACTORY
     Dosage: 6 CYCLES, ABVD REGIMEN
     Route: 065
  12. ETOPOSIDE. [Suspect]
     Active Substance: ETOPOSIDE
     Dosage: HIGH DOSE CHEMOTHERAPY,ESHAP REGIMEN
     Route: 065
  13. CYTARABINE. [Suspect]
     Active Substance: CYTARABINE
     Indication: NON-HODGKIN^S LYMPHOMA REFRACTORY
     Dosage: BEAM REGIMEN
     Route: 065
  14. PREDNISONE. [Suspect]
     Active Substance: PREDNISONE
     Indication: NON-HODGKIN^S LYMPHOMA REFRACTORY
     Dosage: BEACOPP REGIMEN
     Route: 065
  15. CARMUSTINE. [Suspect]
     Active Substance: CARMUSTINE
     Indication: NON-HODGKIN^S LYMPHOMA REFRACTORY
     Dosage: BEAM REGIMEN
     Route: 065
  16. ETOPOSIDE. [Suspect]
     Active Substance: ETOPOSIDE
     Dosage: BEAM REGIMEN
     Route: 065
  17. DOXORUBICIN [Suspect]
     Active Substance: DOXORUBICIN
     Indication: NON-HODGKIN^S LYMPHOMA REFRACTORY
     Dosage: BEACOPP REGIMEN
     Route: 065
  18. BLEOMYCIN [Suspect]
     Active Substance: BLEOMYCIN SULFATE
     Indication: NON-HODGKIN^S LYMPHOMA REFRACTORY
     Dosage: BEACOPP REGIMEN
     Route: 065
  19. ETOPOSIDE. [Suspect]
     Active Substance: ETOPOSIDE
     Indication: NON-HODGKIN^S LYMPHOMA REFRACTORY
     Dosage: BEACOPP REGIMEN
     Route: 065

REACTIONS (1)
  - Hodgkin^s disease recurrent [Recovered/Resolved]
